FAERS Safety Report 4651197-X (Version None)
Quarter: 2005Q2

REPORT INFORMATION
  Report Type: 
  Country: None (occurrence: None)
  Receive Date: 20050331
  Receipt Date: 20050208
  Transmission Date: 20051028
  Serious: No
  Sender: FDA-Public Use
  Company Number: 05P-163-0288351-00

PATIENT
  Age: 75 Year
  Sex: Female
  Weight: 37.195 kg

DRUGS (12)
  1. HUMIRA [Suspect]
     Indication: RHEUMATOID ARTHRITIS
     Dosage: 40 MG, 1 IN 2 WK, SUBCUTANEOUS
     Route: 058
     Dates: start: 20041013
  2. PREDNISONE TAB [Concomitant]
  3. SALSALATE [Concomitant]
  4. TOPROL-XL [Concomitant]
  5. DIOVAN [Concomitant]
  6. LEVOTHYROXINE SODIUM [Concomitant]
  7. DIGOXIN [Concomitant]
  8. POTASSIUM CHLORIDE [Concomitant]
  9. MULTI-VITAMINS [Concomitant]
  10. ACTINOL [Concomitant]
  11. CALCIUM GLUCONATE [Concomitant]
  12. TRAMIDOL [Concomitant]

REACTIONS (5)
  - INJECTION SITE ERYTHEMA [None]
  - INJECTION SITE PAIN [None]
  - INJECTION SITE SWELLING [None]
  - RASH ERYTHEMATOUS [None]
  - RASH PRURITIC [None]
